FAERS Safety Report 19046229 (Version 4)
Quarter: 2022Q2

REPORT INFORMATION
  Report Type: Spontaneous
  Country: ES (occurrence: ES)
  Receive Date: 20210323
  Receipt Date: 20220406
  Transmission Date: 20220721
  Serious: Yes (Hospitalization)
  Sender: FDA-Public Use
  Company Number: ES-FAESFV-2021-6230

PATIENT
  Age: 11 Year
  Sex: Male

DRUGS (6)
  1. PHENYTOIN SODIUM [Suspect]
     Active Substance: PHENYTOIN SODIUM
     Dosage: UNK
  2. PENICILLIN G [Concomitant]
     Active Substance: PENICILLIN G
     Dosage: UNK
  3. SULFAMETHOXAZOLE\TRIMETHOPRIM [Concomitant]
     Active Substance: SULFAMETHOXAZOLE\TRIMETHOPRIM
     Dosage: UNK
  4. CYCLOSPORINE [Concomitant]
     Active Substance: CYCLOSPORINE
     Dosage: UNK
  5. POSACONAZOLE [Concomitant]
     Active Substance: POSACONAZOLE
     Dosage: UNK
  6. CHOLECALCIFEROL [Concomitant]
     Active Substance: CHOLECALCIFEROL
     Dosage: UNK

REACTIONS (6)
  - Anticonvulsant drug level increased [Recovered/Resolved]
  - Neurological symptom [Unknown]
  - Ataxia [Unknown]
  - Dysarthria [Unknown]
  - Diplopia [Unknown]
  - Tremor [Unknown]
